FAERS Safety Report 9639016 (Version 1)
Quarter: 2013Q4

REPORT INFORMATION
  Report Type: Spontaneous
  Country: US (occurrence: US)
  Receive Date: 20131022
  Receipt Date: 20131022
  Transmission Date: 20140711
  Serious: Yes (Other)
  Sender: FDA-Public Use
  Company Number: US-UCBSA-100353

PATIENT
  Age: 33 Year
  Sex: Female

DRUGS (3)
  1. CIMZIA [Suspect]
     Indication: CROHN^S DISEASE
     Dates: start: 20120308
  2. CIMZIA [Suspect]
     Indication: CROHN^S DISEASE
     Dates: start: 20100406
  3. DILAUDID [Concomitant]

REACTIONS (3)
  - Thrombosis [Not Recovered/Not Resolved]
  - Medical device complication [Not Recovered/Not Resolved]
  - Inappropriate schedule of drug administration [Unknown]
